FAERS Safety Report 5552702-1 (Version None)
Quarter: 2007Q4

REPORT INFORMATION
  Report Type: 
  Country: None (occurrence: None)
  Receive Date: 20071212
  Receipt Date: 20070622
  Transmission Date: 20080405
  Serious: No
  Sender: FDA-Public Use
  Company Number: US-AMGEN-KDL230935

PATIENT
  Sex: Female

DRUGS (2)
  1. ENBREL [Suspect]
     Indication: PSORIASIS
     Route: 058
     Dates: start: 20070605, end: 20070620
  2. METHOTREXATE [Concomitant]
     Route: 048
     Dates: start: 20060101

REACTIONS (5)
  - CHILLS [None]
  - DIARRHOEA [None]
  - INJECTION SITE REACTION [None]
  - NAUSEA [None]
  - VISION BLURRED [None]
